FAERS Safety Report 7486922-6 (Version None)
Quarter: 2011Q2

REPORT INFORMATION
  Report Type: 
  Country: None (occurrence: None)
  Receive Date: 20110517
  Receipt Date: 20100616
  Transmission Date: 20111010
  Serious: No
  Sender: FDA-Public Use
  Company Number: US-AMGEN-TCS418870

PATIENT
  Age: 42 Year
  Sex: Male

DRUGS (2)
  1. ENBREL [Suspect]
     Indication: PSORIATIC ARTHROPATHY
     Dosage: 50 MG, 2 TIMES/WK
     Route: 058
     Dates: start: 20070602
  2. ENBREL [Suspect]
     Indication: PSORIASIS

REACTIONS (4)
  - ERYTHEMA [None]
  - DRUG INEFFECTIVE [None]
  - ARTHRALGIA [None]
  - LOWER RESPIRATORY TRACT INFECTION [None]
